FAERS Safety Report 5371351-1 (Version None)
Quarter: 2007Q2

REPORT INFORMATION
  Report Type: 
  Country: None (occurrence: None)
  Receive Date: 20070615
  Receipt Date: 20060713
  Transmission Date: 20071010
  Serious: Yes (Other)
  Sender: FDA-Public Use
  Company Number: 200615854US

PATIENT
  Age: 58 Year
  Sex: Female

DRUGS (6)
  1. LANTUS [Suspect]
     Indication: DIABETES MELLITUS INSULIN-DEPENDENT
     Dosage: 10 U QD SC
     Route: 058
     Dates: start: 20060603
  2. LANTUS [Suspect]
     Indication: DIABETES MELLITUS INSULIN-DEPENDENT
     Dosage: 13 U/DAY SC
     Route: 058
     Dates: start: 20060611, end: 20060612
  3. LANTUS [Suspect]
     Indication: DIABETES MELLITUS INSULIN-DEPENDENT
     Dosage: 12U QD SC
     Route: 058
     Dates: start: 20060613
  4. INSULIN HUMAN (HUMULIN R) [Suspect]
     Indication: DIABETES MELLITUS INSULIN-DEPENDENT
     Dosage: QD SC
     Route: 058
  5. BIMATOPROST (LUMIGAN) [Concomitant]
  6. BENAZEPRIL HYDROCHLORIDE [Concomitant]

REACTIONS (4)
  - BLOOD GLUCOSE DECREASED [None]
  - HYPERGLYCAEMIA [None]
  - HYPOGLYCAEMIC COMA [None]
  - LOSS OF CONSCIOUSNESS [None]
